FAERS Safety Report 17604580 (Version 7)
Quarter: 2022Q1

REPORT INFORMATION
  Report Type: Spontaneous
  Country: US (occurrence: US)
  Receive Date: 20200331
  Receipt Date: 20220124
  Transmission Date: 20220424
  Serious: Yes (Other)
  Sender: FDA-Public Use
  Company Number: US-PFIZER INC-2017438951

PATIENT
  Age: 77 Year
  Sex: Female
  Weight: 95.25 kg

DRUGS (3)
  1. CALAN SR [Suspect]
     Active Substance: VERAPAMIL HYDROCHLORIDE
     Indication: Blood pressure fluctuation
     Dosage: 120 MG TO 240 MG (ONE-HALF TO FULL TABLET), AS NEEDED
     Route: 048
     Dates: start: 2016
  2. CALAN SR [Suspect]
     Active Substance: VERAPAMIL HYDROCHLORIDE
     Indication: Arrhythmia
  3. CALAN SR [Suspect]
     Active Substance: VERAPAMIL HYDROCHLORIDE
     Indication: Tachycardia

REACTIONS (8)
  - Neoplasm malignant [Unknown]
  - Loss of consciousness [Unknown]
  - Wrong technique in product usage process [Unknown]
  - Weight increased [Unknown]
  - Back disorder [Unknown]
  - Illness [Unknown]
  - Hypoaesthesia [Unknown]
  - Ear disorder [Unknown]

NARRATIVE: CASE EVENT DATE: 20160101
